FAERS Safety Report 10260009 (Version 1)
Quarter: 2014Q2

REPORT INFORMATION
  Report Type: Report from Study
  Country: IN (occurrence: IN)
  Receive Date: 20140625
  Receipt Date: 20140625
  Transmission Date: 20141212
  Serious: Yes (Hospitalization)
  Sender: FDA-Public Use
  Company Number: IN-BAXTER-2014BAX033671

PATIENT
  Sex: Male
  Weight: 57 kg

DRUGS (1)
  1. DIANEAL PD-2 PERITONEAL DIALISIS SOLUTION WITH 2.5% DEXTROSE [Suspect]
     Indication: PERITONEAL DIALYSIS
     Dosage: 2X2L BAGS
     Route: 033
     Dates: start: 20130308

REACTIONS (1)
  - Infection [Unknown]
